FAERS Safety Report 14015475 (Version 2)
Quarter: 2018Q3

REPORT INFORMATION
  Report Type: Spontaneous
  Country: US (occurrence: US)
  Receive Date: 20170927
  Receipt Date: 20180709
  Transmission Date: 20181010
  Serious: No
  Sender: FDA-Public Use
  Company Number: US-ASTRAZENECA-2017SE98459

PATIENT
  Age: 61 Year
  Sex: Female

DRUGS (2)
  1. ZOMIG [Suspect]
     Active Substance: ZOLMITRIPTAN
     Indication: MIGRAINE
     Dosage: 5.0MG UNKNOWN
     Route: 048
     Dates: start: 20080819
  2. ZOMIG [Suspect]
     Active Substance: ZOLMITRIPTAN
     Indication: MIGRAINE
     Dosage: 1 TABLET BY MOUTH AS NEEDED OR 1 ADDITIONAL TABLET AS NEEDED UNKNOWN
     Route: 048

REACTIONS (2)
  - Dysgeusia [Unknown]
  - Migraine [Unknown]

NARRATIVE: CASE EVENT DATE: 2017
